FAERS Safety Report 19656376 (Version 1)
Quarter: 2021Q3

REPORT INFORMATION
  Report Type: Report from Study
  Country: NL (occurrence: NL)
  Receive Date: 20210804
  Receipt Date: 20210804
  Transmission Date: 20211014
  Serious: Yes (Hospitalization)
  Sender: FDA-Public Use
  Company Number: NL-BIOVITRUM-2021NL7216

PATIENT
  Age: 6 Month
  Sex: Male
  Weight: 5.1 kg

DRUGS (3)
  1. FERROUS FUMARATE [Concomitant]
     Active Substance: FERROUS FUMARATE
  2. VITAMIN D [Concomitant]
     Active Substance: VITAMIN D NOS
  3. SYNAGIS [Suspect]
     Active Substance: PALIVIZUMAB
     Indication: BRONCHOPULMONARY DYSPLASIA
     Route: 030
     Dates: start: 20210222, end: 20210312

REACTIONS (2)
  - Cough [Recovering/Resolving]
  - Respiratory syncytial virus infection [Recovering/Resolving]

NARRATIVE: CASE EVENT DATE: 202107
